FAERS Safety Report 5762076-9 (Version None)
Quarter: 2008Q2

REPORT INFORMATION
  Report Type: 
  Country: None (occurrence: None)
  Receive Date: 20080604
  Receipt Date: 20080521
  Transmission Date: 20081010
  Serious: Yes (Hospitalization)
  Sender: FDA-Public Use
  Company Number: 100#03#2008-02769

PATIENT
  Age: 25 Year
  Sex: Female

DRUGS (6)
  1. CEFALEXIN (CEFALEXIN, CEPHALEXIN) [Suspect]
     Indication: URINARY TRACT INFECTION
     Dosage: 500 MG ORAL
     Route: 048
     Dates: start: 20080425, end: 20080429
  2. FOLIC ACID [Concomitant]
  3. HYDROXOCOBALAMIN (VITAMIN B SUBSTANCES) [Concomitant]
  4. LANSOPRAZOLE [Concomitant]
  5. MOTILIUM (DOMPERIDONE, DOMPERIDONE MALEATE) [Concomitant]
  6. ZOPICLONE (ZOPICLONE) [Concomitant]

REACTIONS (8)
  - BLISTER [None]
  - CONTUSION [None]
  - DRUG EXPOSURE DURING PREGNANCY [None]
  - FLUID RETENTION [None]
  - HYPOAESTHESIA FACIAL [None]
  - MOUTH ULCERATION [None]
  - SWELLING FACE [None]
  - YELLOW SKIN [None]
